FAERS Safety Report 10754749 (Version 1)
Quarter: 2015Q1

REPORT INFORMATION
  Report Type: Spontaneous
  Country: US (occurrence: None)
  Receive Date: 20150130
  Receipt Date: 20150130
  Transmission Date: 20150721
  Serious: No
  Sender: FDA-Public Use
  Company Number: None

PATIENT
  Age: 55 Year
  Sex: Female
  Weight: 61.69 kg

DRUGS (6)
  1. CYMBALTA AND FLUTIEASONE ORABIENATE [Concomitant]
  2. DULOXETINE [Suspect]
     Active Substance: DULOXETINE
     Indication: PAIN IN EXTREMITY
     Route: 048
     Dates: start: 20140403, end: 20140427
  3. VITAMIN D [Concomitant]
     Active Substance: CHOLECALCIFEROL
  4. DULOXETINE [Suspect]
     Active Substance: DULOXETINE
     Indication: DEPRESSION
     Route: 048
     Dates: start: 20140403, end: 20140427
  5. DULOXETINE [Suspect]
     Active Substance: DULOXETINE
     Indication: PAIN
     Route: 048
     Dates: start: 20140403, end: 20140427
  6. ADVIL [Concomitant]
     Active Substance: IBUPROFEN

REACTIONS (4)
  - Adrenal disorder [None]
  - Product substitution issue [None]
  - Initial insomnia [None]
  - Hyperhidrosis [None]

NARRATIVE: CASE EVENT DATE: 20140403
